FAERS Safety Report 19379733 (Version 1)
Quarter: 2021Q2

REPORT INFORMATION
  Report Type: Spontaneous
  Country: US (occurrence: US)
  Receive Date: 20210607
  Receipt Date: 20210607
  Transmission Date: 20210717
  Serious: No
  Sender: FDA-Public Use
  Company Number: US-TEVA-2021-US-1914311

PATIENT
  Sex: Male

DRUGS (1)
  1. MUPIROCIN TEVA [Suspect]
     Active Substance: MUPIROCIN
     Indication: BITE
     Route: 061

REACTIONS (2)
  - Application site erythema [Recovered/Resolved]
  - Application site swelling [Recovered/Resolved]
